FAERS Safety Report 12009345 (Version 1)
Quarter: 2016Q1

REPORT INFORMATION
  Report Type: Spontaneous
  Country: US (occurrence: None)
  Receive Date: 20160204
  Receipt Date: 20160204
  Transmission Date: 20160526
  Serious: No
  Sender: FDA-Public Use
  Company Number: None

PATIENT
  Sex: Male
  Weight: 103.42 kg

DRUGS (11)
  1. PANTOPRAZOLE [Concomitant]
     Active Substance: PANTOPRAZOLE SODIUM
  2. ZEGERID [Concomitant]
     Active Substance: OMEPRAZOLE\SODIUM BICARBONATE
  3. CIPROFLOXACIN. [Concomitant]
     Active Substance: CIPROFLOXACIN
  4. VIEKIRA PAK [Suspect]
     Active Substance: DASABUVIR\OMBITASVIR\PARITAPREVIR\RITONAVIR
     Indication: HEPATITIS C
     Dosage: 12.5MG/75MG/50MG, 3 TABLETS IN THE AM 1 TABLET IN THE PM, TWICE DAILY, BY MOUTH
     Dates: start: 20150608, end: 20150910
  5. BENAZEPRIL [Concomitant]
     Active Substance: BENAZEPRIL HYDROCHLORIDE
  6. DIPHENATROP [Concomitant]
  7. TEMAZEPAM. [Concomitant]
     Active Substance: TEMAZEPAM
  8. ONDANSETRON [Concomitant]
     Active Substance: ONDANSETRON
  9. ZEGERIDOTE [Concomitant]
  10. AMLODIPINE [Concomitant]
     Active Substance: AMLODIPINE BESYLATE
  11. JANUNET [Concomitant]

REACTIONS (12)
  - Decreased appetite [None]
  - Dyspnoea [None]
  - Nausea [None]
  - Fatigue [None]
  - Diarrhoea [None]
  - Insomnia [None]
  - Dyskinesia [None]
  - Mood swings [None]
  - Malaise [None]
  - Asthenia [None]
  - Depression [None]
  - Dehydration [None]
